FAERS Safety Report 6413404-2 (Version None)
Quarter: 2009Q4

REPORT INFORMATION
  Report Type: 
  Country: None (occurrence: None)
  Receive Date: 20091026
  Receipt Date: 20091013
  Transmission Date: 20100525
  Serious: Yes (Hospitalization)
  Sender: FDA-Public Use
  Company Number: US-JNJFOC-20091006011

PATIENT
  Age: 35 Year
  Sex: Female

DRUGS (3)
  1. ACETAMINOPHEN [Suspect]
  2. ACETAMINOPHEN [Suspect]
     Indication: PAIN MANAGEMENT
  3. IBUPROFEN [Suspect]
     Indication: PAIN MANAGEMENT
     Dosage: 6 DOSES TOTAL

REACTIONS (1)
  - ANAPHYLACTIC REACTION [None]
